FAERS Safety Report 6804456-6 (Version None)
Quarter: 2010Q2

REPORT INFORMATION
  Report Type: 
  Country: None (occurrence: None)
  Receive Date: 20100628
  Receipt Date: 20070402
  Transmission Date: 20101027
  Serious: No
  Sender: FDA-Public Use
  Company Number: US-PFIZER INC-2007027494

PATIENT

DRUGS (1)
  1. DOSTINEX [Suspect]

REACTIONS (1)
  - DRUG EXPOSURE DURING PREGNANCY [None]
